FAERS Safety Report 18987067 (Version 1)
Quarter: 2021Q1

REPORT INFORMATION
  Report Type: Spontaneous
  Country: US (occurrence: US)
  Receive Date: 20210309
  Receipt Date: 20210309
  Transmission Date: 20210420
  Serious: No
  Sender: FDA-Public Use
  Company Number: None

PATIENT
  Age: 29 Year
  Sex: Female
  Weight: 56.7 kg

DRUGS (1)
  1. SUBOXONE [Suspect]
     Active Substance: BUPRENORPHINE HYDROCHLORIDE\NALOXONE HYDROCHLORIDE
     Indication: DRUG DEPENDENCE
     Dosage: OTHER DOSE:2 FILMS;?
     Route: 060
     Dates: start: 20191008, end: 20191021

REACTIONS (2)
  - Tongue blistering [None]
  - Tongue discomfort [None]

NARRATIVE: CASE EVENT DATE: 20191008
